FAERS Safety Report 8659092 (Version 2)
Quarter: 2013Q3

REPORT INFORMATION
  Report Type: Spontaneous
  Country: US (occurrence: US)
  Receive Date: 20120710
  Receipt Date: 20130705
  Transmission Date: 20140515
  Serious: Yes (Other)
  Sender: FDA-Public Use
  Company Number: CHPA2012US014043

PATIENT
  Age: 80 Year
  Sex: Female

DRUGS (5)
  1. EXCEDRIN PM [Suspect]
     Indication: INSOMNIA
     Dosage: UNK, PRN
     Route: 048
  2. EXCEDRIN MIGRAINE [Suspect]
     Indication: INSOMNIA
     Dosage: 2 DF, PRN
     Route: 048
     Dates: start: 20120624
  3. EXCEDRIN MIGRAINE [Suspect]
     Indication: HEADACHE
     Dosage: UNK, UNK
     Route: 048
  4. EXCEDRIN MIGRAINE [Suspect]
     Indication: MIGRAINE
  5. MELATONIN [Concomitant]
     Dosage: UNK, UNK
     Route: 048
     Dates: start: 201206, end: 201206

REACTIONS (5)
  - Bursitis [Not Recovered/Not Resolved]
  - Tendonitis [Not Recovered/Not Resolved]
  - Musculoskeletal pain [Recovered/Resolved]
  - Headache [Recovered/Resolved]
  - Neck pain [Recovered/Resolved]
